FAERS Safety Report 6182059-7 (Version None)
Quarter: 2009Q2

REPORT INFORMATION
  Report Type: 
  Country: None (occurrence: None)
  Receive Date: 20090507
  Receipt Date: 20090424
  Transmission Date: 20091009
  Serious: Yes (Other)
  Sender: FDA-Public Use
  Company Number: JP-PFIZER INC-2009190144

PATIENT

DRUGS (6)
  1. CHAMPIX [Suspect]
     Dosage: UNKNOWN
     Route: 048
     Dates: start: 20090216, end: 20090315
  2. SHIKICHOL [Concomitant]
     Dosage: UNKNOWN
     Route: 048
     Dates: start: 20090216
  3. KARIKUROMONE [Concomitant]
     Dosage: UNKNOWN
     Route: 048
     Dates: start: 20090216
  4. DIOVANE [Concomitant]
     Dosage: UNKNOWN
     Route: 048
     Dates: start: 20090216
  5. ASPIRIN [Concomitant]
     Dosage: UNKNOWN
     Route: 048
     Dates: start: 20090216
  6. ECABET MONOSODIUM [Concomitant]
     Dosage: UNKNOWN
     Route: 048
     Dates: start: 20090216

REACTIONS (4)
  - DELIRIUM [None]
  - HALLUCINATION, AUDITORY [None]
  - INSOMNIA [None]
  - LIMB INJURY [None]
